FAERS Safety Report 9097813 (Version 1)
Quarter: 2013Q1

REPORT INFORMATION
  Report Type: Spontaneous
  Country: AU (occurrence: AU)
  Receive Date: 20130212
  Receipt Date: 20130212
  Transmission Date: 20140127
  Serious: Yes (Other)
  Sender: FDA-Public Use
  Company Number: AU-ROCHE-1190239

PATIENT
  Age: 59 Year
  Sex: Female

DRUGS (1)
  1. TRASTUZUMAB [Suspect]
     Indication: BREAST CANCER
     Route: 065

REACTIONS (7)
  - Thrombocytopenia [Unknown]
  - Neurotoxicity [Unknown]
  - Anaemia [Unknown]
  - Nausea [Unknown]
  - Vomiting [Unknown]
  - Stomatitis [Unknown]
  - Diarrhoea [Unknown]
